FAERS Safety Report 5929436-4 (Version None)
Quarter: 2008Q3

REPORT INFORMATION
  Report Type: 
  Country: None (occurrence: None)
  Receive Date: 20080924
  Receipt Date: 20080611
  Transmission Date: 20090109
  Serious: Yes (Hospitalization)
  Sender: FDA-Public Use
  Company Number: A03200802353

PATIENT
  Sex: Male

DRUGS (2)
  1. AMBIEN CR [Suspect]
     Dosage: 15 TABLETS ONCE - ORAL
     Route: 048
  2. AMBIEN CR [Suspect]
     Dosage: ORAL
     Route: 048

REACTIONS (3)
  - HALLUCINATION [None]
  - INTENTIONAL OVERDOSE [None]
  - SOMNAMBULISM [None]
